FAERS Safety Report 5940261-0 (Version None)
Quarter: 2008Q4

REPORT INFORMATION
  Report Type: 
  Country: None (occurrence: None)
  Receive Date: 20081030
  Receipt Date: 20081023
  Transmission Date: 20090506
  Serious: Yes (Death, Other)
  Sender: FDA-Public Use
  Company Number: SPV1-2008-02283

PATIENT
  Sex: 0

DRUGS (2)
  1. FOSRENOL [Suspect]
  2. GADOLINIUM(GADOLINIUM) [Suspect]

REACTIONS (3)
  - ANGIOPATHY [None]
  - CARDIAC DISORDER [None]
  - NEPHROGENIC SYSTEMIC FIBROSIS [None]
